FAERS Safety Report 10952235 (Version 2)
Quarter: 2015Q2

REPORT INFORMATION
  Report Type: Spontaneous
  Country: JP (occurrence: JP)
  Receive Date: 20150325
  Receipt Date: 20150414
  Transmission Date: 20150821
  Serious: Yes (Other)
  Sender: FDA-Public Use
  Company Number: JP-SA-2015SA035904

PATIENT
  Age: 73 Year
  Sex: Male

DRUGS (1)
  1. BCG FOR IMMUNOTHERAPY [Suspect]
     Active Substance: BACILLUS CALMETTE-GUERIN ANTIGEN, UNSPECIFIED SUBSTRAIN
     Indication: BLADDER TRANSITIONAL CELL CARCINOMA
     Route: 043

REACTIONS (3)
  - Arthralgia [Unknown]
  - Reiter^s syndrome [Unknown]
  - Neck pain [Unknown]
